FAERS Safety Report 16423014 (Version 2)
Quarter: 2019Q2

REPORT INFORMATION
  Report Type: Report from Study
  Country: RU (occurrence: RU)
  Receive Date: 20190612
  Receipt Date: 20190613
  Transmission Date: 20190711
  Serious: Yes (Other)
  Sender: FDA-Public Use
  Company Number: RU-JNJFOC-20190601985

PATIENT

DRUGS (6)
  1. TERIZIDONE [Suspect]
     Active Substance: TERIZIDONE
     Indication: TUBERCULOSIS
     Route: 065
  2. SIRTURO [Suspect]
     Active Substance: BEDAQUILINE FUMARATE
     Indication: TUBERCULOSIS
     Route: 048
  3. CYCLOSERINE. [Suspect]
     Active Substance: CYCLOSERINE
     Indication: TUBERCULOSIS
     Route: 065
  4. MOXIFLOXACIN. [Suspect]
     Active Substance: MOXIFLOXACIN
     Indication: TUBERCULOSIS
     Route: 065
  5. LEVOFLOXACIN. [Suspect]
     Active Substance: LEVOFLOXACIN
     Indication: TUBERCULOSIS
     Route: 065
  6. LINEZOLID. [Suspect]
     Active Substance: LINEZOLID
     Indication: TUBERCULOSIS
     Route: 065

REACTIONS (20)
  - Thrombocytopenia [Unknown]
  - Electrolyte imbalance [Unknown]
  - Visual impairment [Unknown]
  - Drug ineffective [Unknown]
  - Asthenia [Unknown]
  - Gastrointestinal disorder [Unknown]
  - Ototoxicity [Unknown]
  - Neurotoxicity [Unknown]
  - Anaemia [Unknown]
  - Eosinophilia [Unknown]
  - Off label use [Unknown]
  - Intentional product use issue [Unknown]
  - Nephropathy toxic [Unknown]
  - Hepatotoxicity [Unknown]
  - Adverse drug reaction [Unknown]
  - Dry mouth [Unknown]
  - Hypomania [Unknown]
  - Hyperglycaemia [Unknown]
  - Arthralgia [Unknown]
  - Multiple allergies [Unknown]
